FAERS Safety Report 9077131 (Version 1)
Quarter: 2013Q1

REPORT INFORMATION
  Report Type: Report from Study
  Country: US (occurrence: US)
  Receive Date: 20130130
  Receipt Date: 20130130
  Transmission Date: 20140127
  Serious: No
  Sender: FDA-Public Use
  Company Number: US-ABBOTT-12P-163-0954486-00

PATIENT
  Age: 52 Year
  Sex: Male

DRUGS (11)
  1. HUMIRA 40 MG/0.8 ML PEN [Suspect]
     Indication: RHEUMATOID ARTHRITIS
     Dates: start: 20120525
  2. PREDNISONE [Concomitant]
     Indication: RHEUMATOID ARTHRITIS
     Dosage: 4 TABLETS DAILY
  3. CLONAZEPAM [Concomitant]
     Indication: NERVOUSNESS
  4. FOLIC ACID [Concomitant]
     Indication: PRODUCT USED FOR UNKNOWN INDICATION
     Dosage: 1MG DAILY
  5. LOSARTAN [Concomitant]
     Indication: HYPERTENSION
     Dosage: 50MG DAILY
  6. POTASSIUM [Concomitant]
     Indication: BLOOD POTASSIUM DECREASED
     Dosage: 10MG DAILY
     Route: 048
  7. POTASSIUM [Concomitant]
     Indication: DRUG THERAPY
  8. METFORMIN [Concomitant]
     Indication: DIABETES MELLITUS
     Dosage: 500MG DAILY
     Route: 048
  9. METHOTREXATE [Concomitant]
     Indication: RHEUMATOID ARTHRITIS
     Dosage: 8 TABLETS WEEKLY
  10. HYDROCODONE [Concomitant]
     Indication: PAIN
     Dosage: 5/500MG 1 TABLET
  11. GABAPENTIN [Concomitant]
     Indication: DIABETES MELLITUS
     Dosage: 300MG DAILY
     Route: 048

REACTIONS (1)
  - Nervousness [Recovering/Resolving]
